FAERS Safety Report 9727822 (Version 1)
Quarter: 2013Q4

REPORT INFORMATION
  Report Type: Report from Study
  Country: US (occurrence: US)
  Receive Date: 20131204
  Receipt Date: 20131204
  Transmission Date: 20140711
  Serious: Yes (Hospitalization)
  Sender: FDA-Public Use
  Company Number: US-ROCHE-1309639

PATIENT
  Age: 35 Year
  Sex: Female

DRUGS (3)
  1. ZELBORAF [Suspect]
     Indication: MALIGNANT MELANOMA
     Route: 065
     Dates: start: 20131021, end: 20131101
  2. ZELBORAF [Suspect]
     Route: 065
     Dates: start: 20131107, end: 20131116
  3. ZELBORAF [Suspect]
     Dosage: PLANS TO RESTART
     Route: 065
     Dates: start: 20131127

REACTIONS (9)
  - Sepsis [Recovering/Resolving]
  - Pyrexia [Recovering/Resolving]
  - Clostridium difficile infection [Recovering/Resolving]
  - Vomiting [Unknown]
  - Diarrhoea [Recovering/Resolving]
  - Anxiety [Recovering/Resolving]
  - Nausea [Recovering/Resolving]
  - Fear [Recovering/Resolving]
  - Blood potassium decreased [Unknown]
